FAERS Safety Report 5315326-7 (Version None)
Quarter: 2007Q2

REPORT INFORMATION
  Report Type: 
  Country: None (occurrence: None)
  Receive Date: 20070502
  Receipt Date: 20070423
  Transmission Date: 20071010
  Serious: Yes (Other)
  Sender: FDA-Public Use
  Company Number: US-PFIZER INC-2007033290

PATIENT
  Sex: Male

DRUGS (4)
  1. CELEBREX [Suspect]
     Route: 048
  2. BEXTRA [Suspect]
     Indication: PAIN
     Route: 048
     Dates: start: 20040917, end: 20041128
  3. BEXTRA [Suspect]
     Indication: INFLAMMATION
  4. VIOXX [Suspect]
     Route: 048
     Dates: start: 20010401, end: 20040901

REACTIONS (2)
  - CEREBROVASCULAR ACCIDENT [None]
  - TRANSIENT ISCHAEMIC ATTACK [None]
